FAERS Safety Report 21120947 (Version 2)
Quarter: 2022Q4

REPORT INFORMATION
  Report Type: Report from Study
  Country: US (occurrence: US)
  Receive Date: 20220722
  Receipt Date: 20221026
  Transmission Date: 20230112
  Serious: No
  Sender: FDA-Public Use
  Company Number: US-MIRM-000392

PATIENT
  Sex: Male

DRUGS (2)
  1. LIVMARLI [Suspect]
     Active Substance: MARALIXIBAT CHLORIDE
     Indication: Product used for unknown indication
     Route: 048
  2. LIVMARLI [Suspect]
     Active Substance: MARALIXIBAT CHLORIDE
     Indication: Product used for unknown indication
     Route: 048
     Dates: start: 202112

REACTIONS (7)
  - Total bile acids increased [Unknown]
  - Pruritus [Not Recovered/Not Resolved]
  - Scratch [Unknown]
  - Haemorrhage [Unknown]
  - Xanthoma [Unknown]
  - Liver function test abnormal [Unknown]
  - Wound [Not Recovered/Not Resolved]
